FAERS Safety Report 23856290 (Version 1)
Quarter: 2024Q2

REPORT INFORMATION
  Report Type: Other
  Country: US (occurrence: None)
  Receive Date: 20240515
  Receipt Date: 20240515
  Transmission Date: 20240716
  Serious: Yes (Hospitalization)
  Sender: FDA-Public Use
  Company Number: US-ROCHE-3556688

PATIENT
  Age: 37 Year
  Sex: Male
  Weight: 118.04 kg

DRUGS (4)
  1. OCREVUS [Suspect]
     Active Substance: OCRELIZUMAB
     Indication: Relapsing-remitting multiple sclerosis
     Route: 042
     Dates: start: 2020
  2. OCREVUS [Suspect]
     Active Substance: OCRELIZUMAB
     Route: 042
     Dates: start: 20210929, end: 20220929
  3. GABAPENTIN [Concomitant]
     Active Substance: GABAPENTIN
  4. ALBUTEROL [Concomitant]
     Active Substance: ALBUTEROL

REACTIONS (16)
  - COVID-19 pneumonia [Recovered/Resolved]
  - Neuropathy peripheral [Recovered/Resolved]
  - Muscular weakness [Recovered/Resolved]
  - Fatigue [Not Recovered/Not Resolved]
  - Nasopharyngitis [Recovered/Resolved]
  - Headache [Recovered/Resolved]
  - Vision blurred [Recovered/Resolved]
  - Rhinorrhoea [Recovered/Resolved]
  - Cough [Not Recovered/Not Resolved]
  - Nasal congestion [Not Recovered/Not Resolved]
  - Osteonecrosis [Unknown]
  - Tooth fracture [Recovered/Resolved]
  - Ocular hyperaemia [Not Recovered/Not Resolved]
  - Dry eye [Not Recovered/Not Resolved]
  - Lower respiratory tract infection [Recovered/Resolved]
  - Multiple sclerosis [Unknown]

NARRATIVE: CASE EVENT DATE: 20211101
